FAERS Safety Report 24890018 (Version 1)
Quarter: 2025Q1

REPORT INFORMATION
  Report Type: Spontaneous
  Country: CN (occurrence: CN)
  Receive Date: 20250127
  Receipt Date: 20250127
  Transmission Date: 20250409
  Serious: Yes (Hospitalization)
  Sender: BAYER HEALTHCARE PHARMACEUTICALS INC.
  Company Number: CN-BAYER-2025A012381

PATIENT
  Age: 63 Year
  Sex: Male
  Weight: 64 kg

DRUGS (1)
  1. STIVARGA [Suspect]
     Active Substance: REGORAFENIB MONOHYDRATE
     Indication: Hepatic cancer
     Dosage: 160 MG, QD, TOOK FOR 21 DAYS AND STOPPED FOR 7 DAYS, 4 WEEKS A CYCLE
     Route: 048
     Dates: start: 20241001, end: 20250119

REACTIONS (5)
  - Myelosuppression [Recovering/Resolving]
  - Abdominal pain [None]
  - Abdominal distension [None]
  - Fatigue [None]
  - Asthenia [None]

NARRATIVE: CASE EVENT DATE: 20250112
